FAERS Safety Report 26147792 (Version 1)
Quarter: 2025Q4

REPORT INFORMATION
  Report Type: Spontaneous
  Country: US (occurrence: US)
  Receive Date: 20251212
  Receipt Date: 20251212
  Transmission Date: 20260118
  Serious: Yes (Hospitalization)
  Sender: JOHNSON AND JOHNSON
  Company Number: US-JNJFOC-20251207061

PATIENT
  Age: 66 Year
  Sex: Male

DRUGS (4)
  1. ZYTIGA [Suspect]
     Active Substance: ABIRATERONE ACETATE
     Indication: Hormone-dependent prostate cancer
  2. ROSUVASTATIN [Suspect]
     Active Substance: ROSUVASTATIN
     Indication: Hormone-dependent prostate cancer
  3. PREDNISONE [Concomitant]
     Active Substance: PREDNISONE
     Indication: Hormone-dependent prostate cancer
  4. PREDNISONE [Concomitant]
     Active Substance: PREDNISONE
     Dosage: STARTED ~1 MONTH AGO

REACTIONS (3)
  - Acute kidney injury [Recovered/Resolved]
  - Rhabdomyolysis [Unknown]
  - Drug interaction [Unknown]
